FAERS Safety Report 18019185 (Version 1)
Quarter: 2020Q3

REPORT INFORMATION
  Report Type: Spontaneous
  Country: US (occurrence: US)
  Receive Date: 20200714
  Receipt Date: 20200714
  Transmission Date: 20201103
  Serious: Yes (Hospitalization)
  Sender: FDA-Public Use
  Company Number: None

PATIENT
  Age: 34 Month
  Sex: Male
  Weight: 12.6 kg

DRUGS (7)
  1. TOPOTECAN [Suspect]
     Active Substance: TOPOTECAN HYDROCHLORIDE
     Dates: end: 20200619
  2. LACTULOSE. [Concomitant]
     Active Substance: LACTULOSE
  3. ONDANSETRON [Concomitant]
     Active Substance: ONDANSETRON
  4. SULFAMETHOXAZOLE?TRIMETHOPRIM [Concomitant]
     Active Substance: SULFAMETHOXAZOLE\TRIMETHOPRIM
  5. POLYETHYLENE GLYCOL [Concomitant]
     Active Substance: POLYETHYLENE GLYCOLS
  6. CYCLOPHOSPHAMIDE. [Suspect]
     Active Substance: CYCLOPHOSPHAMIDE
     Dates: end: 20200619
  7. G?CSF (FILGRASTIM, AMGEN) [Suspect]
     Active Substance: FILGRASTIM
     Dates: end: 20200619

REACTIONS (4)
  - Therapy interrupted [None]
  - Aspartate aminotransferase increased [None]
  - Viral infection [None]
  - Alanine aminotransferase increased [None]

NARRATIVE: CASE EVENT DATE: 20200707
